FAERS Safety Report 6987478-4 (Version None)
Quarter: 2010Q3

REPORT INFORMATION
  Report Type: 
  Country: None (occurrence: None)
  Receive Date: 20100916
  Receipt Date: 20100907
  Transmission Date: 20110219
  Serious: Yes (Other)
  Sender: FDA-Public Use
  Company Number: GB-BRISTOL-MYERS SQUIBB COMPANY-15279771

PATIENT
  Age: 43 Year
  Sex: Male

DRUGS (7)
  1. REYATAZ [Suspect]
     Route: 048
  2. KIVEXA [Concomitant]
  3. MOXIFLOXACIN [Concomitant]
  4. ETHAMBUTOL HYDROCHLORIDE [Concomitant]
     Dosage: MORNING
  5. RIFABUTIN [Concomitant]
  6. HALOPERIDOL [Concomitant]
     Route: 058
  7. SEPTRIN [Concomitant]

REACTIONS (2)
  - MYCOBACTERIUM AVIUM COMPLEX INFECTION [None]
  - VIRAL LOAD INCREASED [None]
